FAERS Safety Report 23677233 (Version 1)
Quarter: 2024Q1

REPORT INFORMATION
  Report Type: Spontaneous
  Country: PT (occurrence: PT)
  Receive Date: 20240327
  Receipt Date: 20240327
  Transmission Date: 20240410
  Serious: Yes (Other)
  Sender: FDA-Public Use
  Company Number: None

PATIENT
  Age: 45 Year
  Sex: Male

DRUGS (3)
  1. VOLTAREN [Suspect]
     Active Substance: DICLOFENAC SODIUM
     Indication: Arthralgia
     Dosage: 3 ML, QD (1 AMPOLA IM DURANTE 6 DIAS)
     Route: 030
     Dates: start: 20240301, end: 20240306
  2. THIOCOLCHICOSIDE [Suspect]
     Active Substance: THIOCOLCHICOSIDE
     Indication: Arthralgia
     Dosage: 2 MILLIGRAM PER MILLILITRE, QD (1 AMPOLA IM DURANTE 6 DIAS)
     Route: 030
     Dates: start: 20240301, end: 20240306
  3. BETAMETHASONE DIPROPIONATE\BETAMETHASONE SODIUM PHOSPHATE [Suspect]
     Active Substance: BETAMETHASONE DIPROPIONATE\BETAMETHASONE SODIUM PHOSPHATE
     Indication: Arthralgia
     Dosage: 2 ML, QD (6.43 MG/ML) (1 AMPOLA UNICA)
     Route: 030
     Dates: start: 20240229, end: 20240229

REACTIONS (2)
  - Dyspepsia [Recovering/Resolving]
  - Abdominal discomfort [Recovering/Resolving]

NARRATIVE: CASE EVENT DATE: 20240301
